FAERS Safety Report 8440756-4 (Version None)
Quarter: 2012Q2

REPORT INFORMATION
  Report Type: 
  Country: None (occurrence: None)
  Receive Date: 20120615
  Receipt Date: 20111210
  Transmission Date: 20120825
  Serious: No
  Sender: FDA-Public Use
  Company Number: IL-NOVEN-11IL003775

PATIENT
  Sex: Female
  Weight: 32 kg

DRUGS (1)
  1. DAYTRANA [Suspect]
     Indication: ATTENTION DEFICIT/HYPERACTIVITY DISORDER
     Dosage: 10 MG, QD
     Route: 062
     Dates: start: 20111210, end: 20111210

REACTIONS (5)
  - HEADACHE [None]
  - TIC [None]
  - TREMOR [None]
  - APPLICATION SITE PRURITUS [None]
  - APPLICATION SITE ERYTHEMA [None]
